FAERS Safety Report 14784229 (Version 1)
Quarter: 2018Q2

REPORT INFORMATION
  Report Type: Spontaneous
  Country: FR (occurrence: FR)
  Receive Date: 20180420
  Receipt Date: 20180420
  Transmission Date: 20180711
  Serious: Yes (Death, Life-Threatening, Hospitalization, Other)
  Sender: FDA-Public Use
  Company Number: FR-IPSEN BIOPHARMACEUTICALS, INC.-2018-05586

PATIENT
  Age: 47 Year
  Sex: Female
  Weight: 45 kg

DRUGS (22)
  1. TEMODAL [Suspect]
     Active Substance: TEMOZOLOMIDE
     Dates: start: 20140715, end: 20150722
  2. XGEVA [Suspect]
     Active Substance: DENOSUMAB
     Indication: PANCREATIC NEUROENDOCRINE TUMOUR METASTATIC
     Dates: start: 201405
  3. SOMATULINE [Suspect]
     Active Substance: LANREOTIDE ACETATE
     Indication: PRODUCT USED FOR UNKNOWN INDICATION
     Dosage: NOT REPORTED
     Route: 065
  4. XELODA [Suspect]
     Active Substance: CAPECITABINE
     Dates: start: 20140715, end: 20150722
  5. PARACETAMOL [Concomitant]
     Active Substance: ACETAMINOPHEN
  6. BI-PROFENID [Concomitant]
     Active Substance: KETOPROFEN
     Dates: start: 2015
  7. AFINITOR [Suspect]
     Active Substance: EVEROLIMUS
     Indication: PANCREATIC NEUROENDOCRINE TUMOUR METASTATIC
     Dates: start: 20150804, end: 20151019
  8. KETOPROFEN. [Concomitant]
     Active Substance: KETOPROFEN
  9. INNOHEP [Concomitant]
     Active Substance: TINZAPARIN SODIUM
  10. ACTISKENAN [Concomitant]
     Active Substance: MORPHINE SULFATE
     Dates: start: 2015
  11. CALCIUM [Concomitant]
     Active Substance: CALCIUM
     Indication: MINERAL SUPPLEMENTATION
  12. MOVICOL [Concomitant]
     Active Substance: POLYETHYLENE GLYCOL 3350\POTASSIUM CHLORIDE\SODIUM BICARBONATE\SODIUM CHLORIDE
     Dates: start: 20150722
  13. TEMODAL [Suspect]
     Active Substance: TEMOZOLOMIDE
     Indication: PANCREATIC NEUROENDOCRINE TUMOUR METASTATIC
     Dates: start: 20140513, end: 20140620
  14. SUTENT [Suspect]
     Active Substance: SUNITINIB MALATE
     Indication: PANCREATIC NEUROENDOCRINE TUMOUR METASTATIC
     Dates: start: 20151105, end: 20160114
  15. LAROXYL [Concomitant]
     Active Substance: AMITRIPTYLINE HYDROCHLORIDE
  16. OXYCONTIN [Concomitant]
     Active Substance: OXYCODONE HYDROCHLORIDE
     Dates: start: 20151014
  17. SOMATULINE [Suspect]
     Active Substance: LANREOTIDE ACETATE
     Indication: PANCREATIC NEUROENDOCRINE TUMOUR METASTATIC
     Dosage: 120 MG
     Route: 065
     Dates: start: 20140414
  18. XELODA [Suspect]
     Active Substance: CAPECITABINE
     Indication: PANCREATIC NEUROENDOCRINE TUMOUR METASTATIC
     Dates: start: 20140513, end: 20140620
  19. OXYNORM [Concomitant]
     Active Substance: OXYCODONE HYDROCHLORIDE
     Dates: start: 20151014
  20. OROCAL D3 [Concomitant]
     Active Substance: CALCIUM CARBONATE\CHOLECALCIFEROL
     Dates: start: 20150722
  21. NEULASTA [Concomitant]
     Active Substance: PEGFILGRASTIM
  22. COLECALCIFEROL [Concomitant]
     Active Substance: CHOLECALCIFEROL

REACTIONS (39)
  - Malignant neoplasm progression [Fatal]
  - Oedema peripheral [Not Recovered/Not Resolved]
  - Appendicitis [Unknown]
  - Metastases to liver [Not Recovered/Not Resolved]
  - Nausea [Recovered/Resolved]
  - Haematochezia [Unknown]
  - Abnormal faeces [Unknown]
  - Asthenia [Recovered/Resolved]
  - Pancreatic neuroendocrine tumour [Not Recovered/Not Resolved]
  - Metastases to bone [Not Recovered/Not Resolved]
  - Mucosal inflammation [Recovered/Resolved]
  - Thrombosis [Not Recovered/Not Resolved]
  - Sciatica [Not Recovered/Not Resolved]
  - Abdominal pain [Unknown]
  - Diarrhoea [Recovered/Resolved]
  - Pain [Not Recovered/Not Resolved]
  - Back pain [Not Recovered/Not Resolved]
  - Weight increased [Unknown]
  - Rash [Recovered/Resolved]
  - Asthma [Recovered/Resolved]
  - Bone pain [Not Recovered/Not Resolved]
  - Drug hypersensitivity [Not Recovered/Not Resolved]
  - Tachycardia [Recovered/Resolved]
  - Abdominal distension [Unknown]
  - Diarrhoea [Recovered/Resolved]
  - Vomiting [Recovered/Resolved]
  - Constipation [Recovered/Resolved]
  - Haemorrhoids [Unknown]
  - Neutropenia [Recovered/Resolved]
  - Inflammation [Not Recovered/Not Resolved]
  - Depression [Not Recovered/Not Resolved]
  - Asthenia [Recovered/Resolved]
  - Vomiting [Recovered/Resolved]
  - Thyroid mass [Unknown]
  - Metastases to spine [Not Recovered/Not Resolved]
  - General physical health deterioration [Fatal]
  - Nausea [Recovered/Resolved]
  - Nodule [Unknown]
  - Portal vein thrombosis [Recovered/Resolved]

NARRATIVE: CASE EVENT DATE: 20140327
